FAERS Safety Report 18178929 (Version 1)
Quarter: 2020Q3

REPORT INFORMATION
  Report Type: Spontaneous
  Country: US (occurrence: US)
  Receive Date: 20200820
  Receipt Date: 20200820
  Transmission Date: 20201103
  Serious: Yes (Death, Other)
  Sender: FDA-Public Use
  Company Number: NVSC2020US226159

PATIENT
  Age: 41 Year

DRUGS (10)
  1. RICE [CARBOPLATIN] [Suspect]
     Active Substance: CARBOPLATIN
  2. RICE [IFOSFAMIDE] [Suspect]
     Active Substance: IFOSFAMIDE
  3. R?CHOP CHEMOTHERAPY [Suspect]
     Active Substance: CYCLOPHOSPHAMIDE\DOXORUBICIN\PREDNISONE\RITUXIMAB\VINCRISTINE
     Indication: DIFFUSE LARGE B-CELL LYMPHOMA RECURRENT
     Dosage: UNK
     Route: 065
  4. TISAGENLECLEUCEL. [Suspect]
     Active Substance: TISAGENLECLEUCEL
     Indication: DIFFUSE LARGE B-CELL LYMPHOMA RECURRENT
     Dosage: UNK
     Route: 065
  5. RICE [ETOPOSIDE PHOSPHATE] [Suspect]
     Active Substance: ETOPOSIDE PHOSPHATE
  6. R?GDP [RITUXIMAB] [Suspect]
     Active Substance: RITUXIMAB
  7. R?GDP [CISPLATIN] [Suspect]
     Active Substance: CISPLATIN
     Indication: DIFFUSE LARGE B-CELL LYMPHOMA RECURRENT
     Dosage: UNK
     Route: 065
  8. RICE [RITUXIMAB] [Suspect]
     Active Substance: RITUXIMAB
     Indication: DIFFUSE LARGE B-CELL LYMPHOMA RECURRENT
     Dosage: UNK
     Route: 065
  9. R?GDP [GEMCITABINE] [Suspect]
     Active Substance: GEMCITABINE
  10. R?GDP [DEXAMETHASONE] [Suspect]
     Active Substance: DEXAMETHASONE

REACTIONS (4)
  - Cytokine release syndrome [Unknown]
  - Diffuse large B-cell lymphoma recurrent [Unknown]
  - Death [Fatal]
  - Immune effector cell-associated neurotoxicity syndrome [Unknown]
